FAERS Safety Report 9550695 (Version 1)
Quarter: 2013Q3

REPORT INFORMATION
  Report Type: Spontaneous
  Country: US (occurrence: US)
  Receive Date: 20130924
  Receipt Date: 20130924
  Transmission Date: 20140515
  Serious: No
  Sender: FDA-Public Use
  Company Number: US-SANOFI-AVENTIS-2013SA017664

PATIENT
  Age: 56 Year
  Sex: Female
  Weight: 63 kg

DRUGS (10)
  1. AUBAGIO [Suspect]
     Indication: MULTIPLE SCLEROSIS
     Dosage: PRODUCT START DATE IN FOLLOW-UP: 14-FEB-2013
     Route: 048
     Dates: start: 20130215, end: 20130218
  2. AUBAGIO [Suspect]
     Indication: MULTIPLE SCLEROSIS
     Route: 048
     Dates: start: 20130223
  3. ZANAFLEX [Suspect]
     Indication: MULTIPLE SCLEROSIS
  4. AMANTADINE [Suspect]
     Indication: MULTIPLE SCLEROSIS
  5. NORCO [Suspect]
     Indication: RHEUMATOID ARTHRITIS
     Dosage: DOSE:- 10/325?FREQUENCY:- 5 TIMES A DAY
  6. TEGRETOL [Suspect]
     Indication: MULTIPLE SCLEROSIS
     Dosage: DOSE:- 100- 2 TABLETS
  7. INDOCIN [Suspect]
     Indication: RHEUMATOID ARTHRITIS
  8. ASTELIN [Concomitant]
     Indication: ASTHMA
     Dosage: DOSE:- 25 SPRAY
  9. SYMBICORT [Concomitant]
     Dosage: DOSE:- 100/45 2 PUFF DOSE:2 PUFF(S)
  10. SINGULAIR [Concomitant]

REACTIONS (7)
  - Abdominal discomfort [Not Recovered/Not Resolved]
  - Abdominal pain upper [Recovered/Resolved]
  - Decreased appetite [Not Recovered/Not Resolved]
  - Bronchitis [Not Recovered/Not Resolved]
  - Cough [Not Recovered/Not Resolved]
  - Nausea [Recovered/Resolved]
  - Hepatic enzyme increased [Recovering/Resolving]
